FAERS Safety Report 7398730-5 (Version None)
Quarter: 2011Q2

REPORT INFORMATION
  Report Type: 
  Country: None (occurrence: None)
  Receive Date: 20110407
  Receipt Date: 20091026
  Transmission Date: 20111010
  Serious: No
  Sender: FDA-Public Use
  Company Number: 2009BI034827

PATIENT
  Age: 50 Year
  Sex: Male

DRUGS (1)
  1. TYSABRI [Suspect]
     Indication: MULTIPLE SCLEROSIS
     Route: 042
     Dates: start: 20090518

REACTIONS (4)
  - MUSCULAR WEAKNESS [None]
  - RESPIRATORY DISORDER [None]
  - MALAISE [None]
  - BALANCE DISORDER [None]
